FAERS Safety Report 7755053-X (Version None)
Quarter: 2011Q3

REPORT INFORMATION
  Report Type: 
  Country: None (occurrence: None)
  Receive Date: 20110913
  Receipt Date: 20110829
  Transmission Date: 20111222
  Serious: Yes (Life-Threatening)
  Sender: FDA-Public Use
  Company Number: 019660

PATIENT
  Age: 66 Year
  Sex: Female

DRUGS (7)
  1. NITROPEN (GLYCERYL TRINITRATE) [Concomitant]
  2. TARIVID OPHTHALMIC (OFLOMACIN) [Concomitant]
  3. MYDRIN P (PHENYLEPHRINE HYDROCHLORIDE, TROPICAMIDE) [Concomitant]
  4. LEVOFLOXACIN [Concomitant]
  5. XYLOCAINE [Concomitant]
  6. PEGAPTANIB SODIUM (PEGAPTANIB SODIUM) UNKNOWN [Suspect]
     Indication: AGE-RELATED MACULAR DEGENERATION
     Dosage: 0.3 MG, OPHTHALMIC
     Route: 047
     Dates: start: 20100225, end: 20100225
  7. ISODINE (POVIDONE-IODINE) [Concomitant]

REACTIONS (1)
  - CHEST PAIN [None]
